FAERS Safety Report 5673328-5 (Version None)
Quarter: 2008Q2

REPORT INFORMATION
  Report Type: 
  Country: None (occurrence: None)
  Receive Date: 20080219
  Receipt Date: 20071105
  Transmission Date: 20081010
  Serious: No
  Sender: FDA-Public Use
  Company Number: TPA2007A02283

PATIENT
  Age: 75 Year
  Weight: 86.1834 kg

DRUGS (5)
  1. ROZEREM [Suspect]
     Indication: INSOMNIA
     Dosage: 8 MG, QHS, PER ORAL
     Route: 048
     Dates: start: 20071001
  2. RESTORIL [Suspect]
     Indication: INSOMNIA
     Dosage: 15 MG, HS, PER ORAL
     Route: 048
     Dates: start: 20071001
  3. AMBIEN CR [Suspect]
     Indication: INSOMNIA
     Dosage: PER ORAL
     Route: 048
     Dates: start: 20071001
  4. UNKNOWN ANTI-DIABETIC MEDICATIONS (DRUG USED IN DIABETES) [Concomitant]
  5. UNKNOWN ANTI-HYPERTENSIVE MEDICATIONS (ANTIHYPERTENSIVES) [Concomitant]

REACTIONS (2)
  - INITIAL INSOMNIA [None]
  - MIDDLE INSOMNIA [None]
